FAERS Safety Report 7001836-3 (Version None)
Quarter: 2010Q3

REPORT INFORMATION
  Report Type: 
  Country: None (occurrence: None)
  Receive Date: 20100920
  Receipt Date: 20070611
  Transmission Date: 20110219
  Serious: Yes (Other)
  Sender: FDA-Public Use
  Company Number: US-ASTRAZENECA-2006UW11049

PATIENT
  Age: 45 Year
  Sex: Female
  Weight: 95.7 kg

DRUGS (12)
  1. SEROQUEL [Suspect]
     Indication: HEADACHE
     Route: 048
     Dates: start: 20050101
  2. SEROQUEL [Suspect]
     Dosage: 25 MG - 100 MG
     Route: 048
     Dates: start: 20051028
  3. NEURONTIN [Concomitant]
     Dosage: 600 MG - 800 MG
     Dates: start: 20010108
  4. NEURONTIN [Concomitant]
     Dosage: 100 MG - 300 MG
     Dates: start: 20010109
  5. GLUCOVANCE [Concomitant]
     Dosage: 5 - 500 MG TWICE A DAY
     Route: 048
     Dates: start: 20020715
  6. EFFEXOR [Concomitant]
     Dosage: 37.5 MG - 150 MG
     Route: 048
     Dates: start: 20041214
  7. LEVOTHYROXINE [Concomitant]
     Route: 048
     Dates: start: 20010109
  8. LIPITOR [Concomitant]
     Dosage: 10 MG - 40 MG
     Dates: start: 20020919
  9. LANTUS [Concomitant]
     Dates: start: 20020715
  10. PREVACID [Concomitant]
     Route: 048
     Dates: start: 20010110
  11. TRAMADOL [Concomitant]
     Route: 048
     Dates: start: 20010108
  12. FLUCONAZOLE [Concomitant]
     Route: 048
     Dates: start: 20051103

REACTIONS (3)
  - DIABETES MELLITUS [None]
  - DIABETIC COMA [None]
  - DIABETIC KETOACIDOSIS [None]
